FAERS Safety Report 6823797-X (Version None)
Quarter: 2010Q3

REPORT INFORMATION
  Report Type: 
  Country: None (occurrence: None)
  Receive Date: 20100708
  Receipt Date: 20060911
  Transmission Date: 20110219
  Serious: No
  Sender: FDA-Public Use
  Company Number: US-PFIZER INC-2006110099

PATIENT
  Sex: Male
  Weight: 65.77 kg

DRUGS (2)
  1. CHANTIX [Suspect]
     Indication: SMOKING CESSATION THERAPY
     Dates: start: 20060905
  2. MULTI-VITAMINS [Concomitant]

REACTIONS (2)
  - DIZZINESS [None]
  - NAUSEA [None]
